FAERS Safety Report 16948364 (Version 13)
Quarter: 2020Q3

REPORT INFORMATION
  Report Type: Spontaneous
  Country: CA (occurrence: CA)
  Receive Date: 20191022
  Receipt Date: 20200918
  Transmission Date: 20201102
  Serious: Yes (Other)
  Sender: FDA-Public Use
  Company Number: CA-CELLTRION INC.-2019CA023079

PATIENT

DRUGS (18)
  1. INFLECTRA [Suspect]
     Active Substance: INFLIXIMAB-DYYB
     Dosage: 900 MG EVERY 4 WEEKS
     Route: 042
     Dates: start: 20200811
  2. INFLECTRA [Suspect]
     Active Substance: INFLIXIMAB-DYYB
     Dosage: 900 MG EVERY 4 WEEKS
     Route: 042
     Dates: start: 20200910
  3. INFLECTRA [Suspect]
     Active Substance: INFLIXIMAB-DYYB
     Dosage: 900 MG EVERY 4 WEEKS
     Route: 042
     Dates: start: 20200323, end: 20200323
  4. INFLECTRA [Suspect]
     Active Substance: INFLIXIMAB-DYYB
     Dosage: 900 MG EVERY 4 WEEKS
     Route: 042
     Dates: start: 20200323, end: 20200323
  5. INFLECTRA [Suspect]
     Active Substance: INFLIXIMAB-DYYB
     Dosage: 500 MG, Q (EVERY) 0, 2, 6 WEEKS, THEN EVERY 8 WEEKS
     Route: 042
     Dates: start: 20191009, end: 20191009
  6. INFLECTRA [Suspect]
     Active Substance: INFLIXIMAB-DYYB
     Dosage: 500 MG, Q (EVERY) 0, 2, 6 WEEKS, THEN EVERY 8 WEEKS
     Route: 042
     Dates: start: 20191204, end: 20191204
  7. INFLECTRA [Suspect]
     Active Substance: INFLIXIMAB-DYYB
     Dosage: 900 MG EVERY 4 WEEKS
     Route: 042
     Dates: start: 20200323, end: 20200323
  8. IMURAN [Concomitant]
     Active Substance: AZATHIOPRINE
     Dosage: UNK
     Route: 065
     Dates: start: 2011
  9. INFLECTRA [Suspect]
     Active Substance: INFLIXIMAB-DYYB
     Dosage: 900 MG EVERY 4 WEEKS
     Route: 042
     Dates: start: 20200323, end: 20200323
  10. INFLECTRA [Suspect]
     Active Substance: INFLIXIMAB-DYYB
     Dosage: 900 MG EVERY 4 WEEKS
     Route: 042
     Dates: start: 20200717, end: 20200717
  11. CORTIMENT [HYDROCORTISONE] [Concomitant]
     Active Substance: HYDROCORTISONE
     Dosage: UNK
     Route: 065
  12. PNEUMOVAX 23 [Concomitant]
     Active Substance: PNEUMOCOCCAL VACCINE, POLYVALENT 23
     Dosage: UNK
     Dates: start: 20191008, end: 20191008
  13. INFLECTRA [Suspect]
     Active Substance: INFLIXIMAB-DYYB
     Dosage: 500 MG, Q (EVERY) 0, 2, 6 WEEKS, THEN EVERY 8 WEEKS
     Route: 042
     Dates: start: 20190705, end: 20190705
  14. INFLECTRA [Suspect]
     Active Substance: INFLIXIMAB-DYYB
     Indication: COLITIS ULCERATIVE
     Dosage: 500 MG, Q (EVERY) 0, 2, 6 WEEKS, THEN EVERY 8 WEEKS
     Route: 042
     Dates: start: 20190705, end: 20190705
  15. INFLECTRA [Suspect]
     Active Substance: INFLIXIMAB-DYYB
     Dosage: 500 MG, Q (EVERY) 0, 2, 6 WEEKS, THEN EVERY 8 WEEKS
     Route: 042
     Dates: start: 20190718, end: 20190718
  16. INFLECTRA [Suspect]
     Active Substance: INFLIXIMAB-DYYB
     Dosage: 500 MG, Q (EVERY) 0, 2, 6 WEEKS, THEN EVERY 8 WEEKS
     Route: 042
     Dates: start: 20190814, end: 20190814
  17. INFLECTRA [Suspect]
     Active Substance: INFLIXIMAB-DYYB
     Dosage: 500 MG, Q (EVERY) 0, 2, 6 WEEKS, THEN EVERY 8 WEEKS
     Route: 042
     Dates: start: 20200129, end: 20200129
  18. INFLECTRA [Suspect]
     Active Substance: INFLIXIMAB-DYYB
     Dosage: 900 MG, EVERY 4 WEEKS
     Route: 042
     Dates: start: 20200615, end: 20200615

REACTIONS (10)
  - Blood pressure increased [Not Recovered/Not Resolved]
  - Off label use [Unknown]
  - Heart rate abnormal [Unknown]
  - Intentional product use issue [Unknown]
  - Therapeutic product effect incomplete [Unknown]
  - Off label use [Unknown]
  - Nasal congestion [Not Recovered/Not Resolved]
  - Gastritis [Recovered/Resolved]
  - Body temperature decreased [Unknown]
  - Inappropriate schedule of product administration [Unknown]

NARRATIVE: CASE EVENT DATE: 20190705
